FAERS Safety Report 7457291-2 (Version None)
Quarter: 2011Q2

REPORT INFORMATION
  Report Type: 
  Country: None (occurrence: None)
  Receive Date: 20110504
  Receipt Date: 20110504
  Transmission Date: 20111010
  Serious: Yes (Hospitalization)
  Sender: FDA-Public Use
  Company Number: FR-JNJFOC-20110411275

PATIENT
  Age: 90 Year
  Sex: Female

DRUGS (12)
  1. CITALOPRAM HYDROBROMIDE [Concomitant]
     Route: 065
  2. SERESTA [Concomitant]
     Route: 065
  3. AMLODIPINE BESYLATE [Concomitant]
     Route: 065
  4. LOVENOX [Suspect]
     Indication: PRODUCT USED FOR UNKNOWN INDICATION
     Route: 065
  5. BRICANYL [Suspect]
     Indication: PRODUCT USED FOR UNKNOWN INDICATION
     Route: 065
  6. LEVOFLOXACIN [Suspect]
     Indication: LUNG DISORDER
     Route: 048
  7. ATROVENT [Suspect]
     Indication: PRODUCT USED FOR UNKNOWN INDICATION
     Route: 065
  8. PULMICORT [Suspect]
     Indication: PRODUCT USED FOR UNKNOWN INDICATION
     Route: 065
  9. CALCIDOSE VITAMIN D [Concomitant]
     Route: 065
  10. LEVOFLOXACIN [Suspect]
     Route: 048
  11. GAVISCON [Suspect]
     Indication: PRODUCT USED FOR UNKNOWN INDICATION
     Route: 065
  12. ROCEPHIN [Concomitant]
     Indication: LUNG DISORDER
     Route: 065

REACTIONS (1)
  - NEUTROPENIA [None]
